FAERS Safety Report 23692678 (Version 1)
Quarter: 2024Q1

REPORT INFORMATION
  Report Type: Spontaneous
  Country: CA (occurrence: None)
  Receive Date: 20240330
  Receipt Date: 20240330
  Transmission Date: 20240410
  Serious: No
  Sender: FDA-Public Use
  Company Number: None

PATIENT
  Age: 61 Year
  Sex: Male
  Weight: 85.5 kg

DRUGS (1)
  1. DOVATO [Suspect]
     Active Substance: DOLUTEGRAVIR SODIUM\LAMIVUDINE
     Indication: HIV infection
     Dates: start: 20240201

REACTIONS (5)
  - Insomnia [None]
  - Gingival bleeding [None]
  - Nightmare [None]
  - Depression [None]
  - Alopecia [None]

NARRATIVE: CASE EVENT DATE: 20240201
